FAERS Safety Report 6309176-2 (Version None)
Quarter: 2009Q3

REPORT INFORMATION
  Report Type: 
  Country: None (occurrence: None)
  Receive Date: 20090814
  Receipt Date: 20090608
  Transmission Date: 20100115
  Serious: No
  Sender: FDA-Public Use
  Company Number: A0789407A

PATIENT
  Age: 80 Year
  Sex: Female

DRUGS (7)
  1. COREG CR [Suspect]
     Indication: HYPERTENSION
     Dosage: 20MG PER DAY
     Route: 048
     Dates: start: 20080601
  2. FOSAMAX [Concomitant]
  3. ATACAND [Concomitant]
  4. WARFARIN SODIUM [Concomitant]
  5. INSPRA [Concomitant]
  6. INDAPAMIDE [Concomitant]
  7. FISH OIL [Concomitant]

REACTIONS (1)
  - BALANCE DISORDER [None]
